FAERS Safety Report 15929404 (Version 6)
Quarter: 2019Q3

REPORT INFORMATION
  Report Type: Report from Study
  Country: US (occurrence: US)
  Receive Date: 20190206
  Receipt Date: 20190710
  Transmission Date: 20191004
  Serious: Yes (Hospitalization)
  Sender: FDA-Public Use
  Company Number: US-ACTELION-A-NJ2018-167706

PATIENT
  Age: 42 Year
  Sex: Female

DRUGS (36)
  1. VANCOMYCIN [Suspect]
     Active Substance: VANCOMYCIN
     Indication: PNEUMONIA
     Dosage: 1250 MG, Q12HRS
     Route: 042
     Dates: start: 20190108, end: 20190110
  2. VANCOMYCIN [Suspect]
     Active Substance: VANCOMYCIN
     Indication: RESPIRATORY TRACT INFECTION
     Dosage: 1000 MG, ONCE
     Route: 042
     Dates: start: 20190107, end: 20190107
  3. CEFTAROLINE [Concomitant]
     Active Substance: CEFTAROLINE
     Indication: RESPIRATORY TRACT INFECTION
     Dosage: 600 MG, Q12HRS
     Route: 042
     Dates: start: 20190109, end: 20190110
  4. DIPHENHYDRAMINE. [Concomitant]
     Active Substance: DIPHENHYDRAMINE
     Indication: PRURITUS
     Dosage: 25 MG, PRN
     Route: 042
     Dates: start: 20190109, end: 20190113
  5. FAMOTIDINE. [Concomitant]
     Active Substance: FAMOTIDINE
     Dosage: 20 MG, ONCE
     Route: 042
     Dates: start: 20190110, end: 20190110
  6. ZOFRAN [Concomitant]
     Active Substance: ONDANSETRON HYDROCHLORIDE
     Indication: NAUSEA
     Dosage: 4 MG, ONCE
     Route: 042
     Dates: start: 20190108, end: 20190108
  7. POTASSIUM BICARBONATE. [Concomitant]
     Active Substance: POTASSIUM BICARBONATE
     Indication: ELECTROLYTE SUBSTITUTION THERAPY
     Dosage: 20 MEQ, Q2H X 2DOSES
     Route: 048
     Dates: start: 20190109, end: 20190109
  8. POTASSIUM CHLORIDE. [Concomitant]
     Active Substance: POTASSIUM CHLORIDE
     Dosage: 40 MEQ ONCE
     Route: 048
     Dates: start: 20190108, end: 20190108
  9. ACETAMINOPHEN. [Suspect]
     Active Substance: ACETAMINOPHEN
     Dosage: 650 MG, ONCE
     Route: 048
     Dates: start: 20190111, end: 20190111
  10. BUMEX [Concomitant]
     Active Substance: BUMETANIDE
     Indication: POLYURIA
     Dosage: 1 MG, QD
     Route: 048
     Dates: start: 20190107, end: 20190107
  11. DIGOXIN. [Concomitant]
     Active Substance: DIGOXIN
     Indication: CARDIAC DISORDER
     Dosage: 250 MCG, QD
     Route: 048
     Dates: start: 20190108, end: 20190119
  12. FLEXERIL [Suspect]
     Active Substance: CYCLOBENZAPRINE HYDROCHLORIDE
     Dosage: 10 MG, TID PRN
     Route: 048
     Dates: start: 20190111, end: 20190112
  13. OMEPRAZOLE. [Concomitant]
     Active Substance: OMEPRAZOLE
     Dosage: 40 MG, BID
     Route: 048
     Dates: start: 20190113, end: 20190119
  14. POTASSIUM CHLORIDE. [Concomitant]
     Active Substance: POTASSIUM CHLORIDE
     Indication: ELECTROLYTE SUBSTITUTION THERAPY
     Dosage: 20 MEQ, QD
     Route: 048
     Dates: start: 20190109, end: 20190119
  15. PREDNISONE. [Concomitant]
     Active Substance: PREDNISONE
     Dosage: 7 MG, QD
     Dates: start: 20190110, end: 20190119
  16. OPSUMIT [Suspect]
     Active Substance: MACITENTAN
     Indication: PULMONARY HYPERTENSION
     Dosage: 10 MG, QD
     Route: 048
     Dates: start: 20160914
  17. FLOLAN [Concomitant]
     Active Substance: EPOPROSTENOL SODIUM
     Indication: PULMONARY HYPERTENSION
     Dosage: 22 NG/KG, PER MIN
     Route: 042
     Dates: start: 20190109, end: 20190119
  18. HEPARIN [Concomitant]
     Active Substance: HEPARIN SODIUM
     Indication: THROMBOSIS PROPHYLAXIS
     Dosage: 100 MG ONCE
     Route: 042
     Dates: start: 20190110, end: 20190115
  19. HYDROCORTISONE. [Concomitant]
     Active Substance: HYDROCORTISONE
     Indication: SEPSIS
     Dosage: 100 MG, ONCE
     Route: 042
     Dates: start: 20190107, end: 20190107
  20. HYDROXYCHLOROQUINE [Concomitant]
     Active Substance: HYDROXYCHLOROQUINE
     Indication: SYSTEMIC LUPUS ERYTHEMATOSUS
     Dosage: 200 MG, BID
     Route: 048
     Dates: start: 20190110, end: 20190119
  21. PREDNISONE. [Concomitant]
     Active Substance: PREDNISONE
     Indication: SYSTEMIC LUPUS ERYTHEMATOSUS
     Dosage: 14 MG, QD
     Route: 048
     Dates: start: 20190108, end: 20190109
  22. MYCOPHENOLATE [Suspect]
     Active Substance: MYCOPHENOLIC ACID
     Indication: SYSTEMIC LUPUS ERYTHEMATOSUS
     Dosage: 100 MG, BID
     Route: 048
     Dates: start: 20190107, end: 20190109
  23. CEFTRIAXONE. [Concomitant]
     Active Substance: CEFTRIAXONE
     Indication: SEPSIS
     Dosage: 2 G Q24H
     Route: 042
     Dates: start: 20190109, end: 20190110
  24. DAPTOMYCIN. [Concomitant]
     Active Substance: DAPTOMYCIN
     Indication: SEPSIS
     Dosage: 500 MG, Q24H
     Route: 042
     Dates: start: 20190112, end: 20190119
  25. HEPARIN [Concomitant]
     Active Substance: HEPARIN SODIUM
     Dosage: 250-3600 ML/HR, CONT INFUS
     Route: 042
  26. OMEPRAZOLE. [Concomitant]
     Active Substance: OMEPRAZOLE
     Indication: GASTROOESOPHAGEAL REFLUX DISEASE
     Dosage: 20 MG, BID
     Route: 048
     Dates: start: 20190107, end: 20190112
  27. PHYTONADIONE. [Concomitant]
     Active Substance: PHYTONADIONE
     Indication: VITAMIN SUPPLEMENTATION
     Dosage: 5 MG, ONCE
     Route: 042
     Dates: start: 20190109, end: 20190109
  28. ACETAMINOPHEN. [Suspect]
     Active Substance: ACETAMINOPHEN
     Indication: HEADACHE
     Dosage: 325 MG, ONCE
     Route: 048
     Dates: start: 20190109, end: 20190109
  29. FLEXERIL [Suspect]
     Active Substance: CYCLOBENZAPRINE HYDROCHLORIDE
     Indication: MUSCLE SPASMS
     Dosage: 10 MG, TID
     Route: 048
     Dates: start: 20190111, end: 20190112
  30. WARFARIN [Concomitant]
     Active Substance: WARFARIN
     Indication: ANTICOAGULANT THERAPY
     Dosage: 20 MG, ONCE
     Route: 048
     Dates: start: 20190107, end: 20190107
  31. BUMEX [Concomitant]
     Active Substance: BUMETANIDE
     Dosage: 1 MG, QD
     Dates: start: 20190114, end: 20190114
  32. FAMOTIDINE. [Concomitant]
     Active Substance: FAMOTIDINE
     Dosage: 10 MG, ONCE
     Route: 042
     Dates: start: 20190110, end: 20190110
  33. AZITHROMYCIN ANHYDROUS. [Concomitant]
     Active Substance: AZITHROMYCIN ANHYDROUS
     Indication: RESPIRATORY TRACT INFECTION
     Dosage: 500 MG Q24 HOURS
     Route: 042
     Dates: start: 20190108, end: 20190109
  34. BUMEX [Concomitant]
     Active Substance: BUMETANIDE
     Dosage: 2 MG, QD
     Dates: start: 20190116, end: 20190116
  35. ZOFRAN [Concomitant]
     Active Substance: ONDANSETRON HYDROCHLORIDE
     Dosage: 4 MG, ONCE
     Route: 042
     Dates: start: 20190110, end: 20190110
  36. SILDENAFIL. [Concomitant]
     Active Substance: SILDENAFIL
     Indication: PULMONARY HYPERTENSION
     Dosage: 20 MG, TID
     Route: 048
     Dates: start: 20190107, end: 20190119

REACTIONS (29)
  - Respiratory failure [Recovered/Resolved]
  - Weight increased [Unknown]
  - Abdominal pain [Recovered/Resolved]
  - Blood bilirubin increased [Recovered/Resolved]
  - Hepatotoxicity [Recovering/Resolving]
  - Emergency care [Unknown]
  - Pneumonia [Recovered/Resolved]
  - Pyrexia [Unknown]
  - Blood alkaline phosphatase increased [Recovering/Resolving]
  - Red man syndrome [Unknown]
  - Aspartate aminotransferase increased [Recovered/Resolved]
  - Pain [Unknown]
  - Pleural effusion [Unknown]
  - Sepsis [Unknown]
  - Headache [Recovered/Resolved]
  - Unevaluable event [Unknown]
  - Pericardial effusion [Unknown]
  - Pulmonary oedema [Unknown]
  - Pneumothorax [Unknown]
  - Fluid retention [Unknown]
  - Influenza [Recovered/Resolved]
  - Abdominal pain upper [Unknown]
  - Alanine aminotransferase increased [Recovered/Resolved]
  - Hyperbilirubinaemia [Recovered/Resolved]
  - Hepatosplenomegaly [Unknown]
  - Cholelithiasis [Unknown]
  - Oedema peripheral [Unknown]
  - Transaminases increased [Recovered/Resolved]
  - Infection [Unknown]

NARRATIVE: CASE EVENT DATE: 20180205
